FAERS Safety Report 7342853-3 (Version None)
Quarter: 2011Q1

REPORT INFORMATION
  Report Type: 
  Country: None (occurrence: None)
  Receive Date: 20110302
  Receipt Date: 20110223
  Transmission Date: 20110831
  Serious: Yes (Death, Hospitalization)
  Sender: FDA-Public Use
  Company Number: 2011MA001696

PATIENT
  Age: 13 Month
  Sex: Male

DRUGS (8)
  1. VINCRISTINE [Suspect]
     Dosage: 1.5 MG/M2,
  2. CYTARABINE [Suspect]
     Dosage: INTH
     Route: 037
  3. IDARUBICIN HCL [Suspect]
     Dosage: 8 MG/M2
  4. METHOTREXATE [Suspect]
     Dosage: INTH
     Route: 037
  5. ARABINOSIDE (NO PREF. NAME) [Suspect]
     Dosage: INTH
     Route: 037
  6. HYDROCORTISONE 2.5% CREAM [Suspect]
     Dosage: INTH
     Route: 037
  7. ASPARAGINASE(9ASPARAGINASE) [Suspect]
     Dosage: 5000 U/M 2
  8. PREDNISOLONE [Suspect]
     Dosage: 40 MG/M2, QD, PO
     Route: 048

REACTIONS (16)
  - GENERAL PHYSICAL HEALTH DETERIORATION [None]
  - TACHYPNOEA [None]
  - PUPIL FIXED [None]
  - TRANSAMINASES INCREASED [None]
  - CAECITIS [None]
  - COMA [None]
  - CONTINUOUS HAEMODIAFILTRATION [None]
  - PAPILLOEDEMA [None]
  - HYPERAMMONAEMIC ENCEPHALOPATHY [None]
  - METABOLIC ALKALOSIS [None]
  - HYPOTHERMIA [None]
  - BLOOD BILIRUBIN INCREASED [None]
  - AGITATION [None]
  - RESPIRATORY ALKALOSIS [None]
  - ELECTROENCEPHALOGRAM ABNORMAL [None]
  - CARDIOPULMONARY FAILURE [None]
